FAERS Safety Report 9232226 (Version 1)
Quarter: 2013Q2

REPORT INFORMATION
  Report Type: Spontaneous
  Country: ES (occurrence: ES)
  Receive Date: 20130415
  Receipt Date: 20130415
  Transmission Date: 20140414
  Serious: Yes (Death, Hospitalization)
  Sender: FDA-Public Use
  Company Number: ES-MYLANLABS-2013S1007535

PATIENT
  Age: 67 Year
  Sex: Male

DRUGS (7)
  1. TRANEXAMIC ACID [Suspect]
     Indication: RECTAL HAEMORRHAGE
     Dosage: THEN 1000MG EVERY 12H
     Route: 048
  2. TRANEXAMIC ACID [Suspect]
     Indication: RECTAL HAEMORRHAGE
     Route: 048
  3. SPIRONOLACTONE [Concomitant]
     Route: 065
  4. FUROSEMIDE [Concomitant]
     Route: 065
  5. OMEPRAZOLE [Concomitant]
     Route: 065
  6. LACTULOSE [Concomitant]
     Route: 065
  7. BISOPROLOL [Concomitant]
     Route: 065

REACTIONS (5)
  - Toxic epidermal necrolysis [Recovering/Resolving]
  - Renal failure acute [Fatal]
  - Multi-organ failure [Fatal]
  - Hypotension [Unknown]
  - Respiratory tract infection [Unknown]
